FAERS Safety Report 5529663-4 (Version None)
Quarter: 2007Q4

REPORT INFORMATION
  Report Type: 
  Country: None (occurrence: None)
  Receive Date: 20071129
  Receipt Date: 20071120
  Transmission Date: 20080405
  Serious: Yes (Hospitalization)
  Sender: FDA-Public Use
  Company Number: FR-PFIZER INC-2007097671

PATIENT
  Age: 47 Year
  Sex: Female

DRUGS (6)
  1. AMLOR [Suspect]
     Dosage: TEXT:1 DF
     Route: 048
  2. RABEPRAZOLE SODIUM [Suspect]
     Dosage: TEXT:1 DF
     Route: 048
  3. COKENZEN [Suspect]
     Dosage: TEXT:1DF
     Route: 048
  4. FENOFIBRATE [Suspect]
     Route: 048
  5. LEVOTHYROXINE SODIUM [Suspect]
     Dosage: TEXT:1 DF
     Route: 048
  6. MONTELUKAST SODIUM [Suspect]
     Dosage: TEXT:1 DF
     Route: 048

REACTIONS (1)
  - HAEMOLYTIC ANAEMIA [None]
